APPROVED DRUG PRODUCT: AMMONIUM LACTATE
Active Ingredient: AMMONIUM LACTATE
Strength: EQ 12% BASE
Dosage Form/Route: LOTION;TOPICAL
Application: A075575 | Product #001
Applicant: WATSON LABORATORIES INC
Approved: Jun 11, 2002 | RLD: No | RS: No | Type: DISCN